FAERS Safety Report 24381469 (Version 1)
Quarter: 2024Q4

REPORT INFORMATION
  Report Type: Other
  Country: PK (occurrence: PK)
  Receive Date: 20241001
  Receipt Date: 20241001
  Transmission Date: 20250115
  Serious: Yes (Life-Threatening, Hospitalization)
  Sender: DEXCEL
  Company Number: PK-DEXPHARM-2024-3233

PATIENT
  Age: 43 Year
  Sex: Female

DRUGS (4)
  1. PREDNISONE [Concomitant]
     Active Substance: PREDNISONE
     Dosage: 10MG/DAY
     Route: 050
  2. DICLOFENAC [Concomitant]
     Active Substance: DICLOFENAC
     Dosage: 50MG TWICE DAY
     Route: 050
  3. OMEPRAZOLE [Suspect]
     Active Substance: OMEPRAZOLE
     Dosage: OCCASIONALLY 40 MG TWICE DAILY
     Route: 050
  4. OMEPRAZOLE [Suspect]
     Active Substance: OMEPRAZOLE
     Dosage: 40MG ONCE DAILY FOR A DECADE
     Route: 050

REACTIONS (1)
  - Hypomagnesaemia [Not Recovered/Not Resolved]
